FAERS Safety Report 10923139 (Version 1)
Quarter: 2015Q1

REPORT INFORMATION
  Report Type: Spontaneous
  Country: DE (occurrence: DE)
  Receive Date: 20150317
  Receipt Date: 20150317
  Transmission Date: 20150721
  Serious: Yes (Other)
  Sender: FDA-Public Use
  Company Number: GXKR2015DE001512

PATIENT

DRUGS (3)
  1. SALBUTAMOL [Concomitant]
     Active Substance: ALBUTEROL
     Indication: ASTHMA
     Dosage: MATERNAL DOSE: 1 DF, PRN
     Route: 064
  2. FOLIO FORTE [Concomitant]
     Active Substance: FOLIC ACID\VITAMINS
     Indication: PROPHYLAXIS OF NEURAL TUBE DEFECT
     Dosage: MATERNAL DOSE (8.-12. GESTATIONAL WEEK): 0.8 MG, QD
     Route: 064
  3. PAROXETINE [Suspect]
     Active Substance: PAROXETINE\PAROXETINE HYDROCHLORIDE
     Indication: DEPRESSION
     Dosage: MATERNAL DOSE: 40 [MG/D (TO 20) ]
     Route: 064
     Dates: start: 20130715, end: 20140313

REACTIONS (2)
  - Intraventricular haemorrhage neonatal [Recovering/Resolving]
  - Premature baby [Recovering/Resolving]

NARRATIVE: CASE EVENT DATE: 201403
